FAERS Safety Report 15184818 (Version 1)
Quarter: 2018Q3

REPORT INFORMATION
  Report Type: Spontaneous
  Country: US (occurrence: US)
  Receive Date: 20180723
  Receipt Date: 20180723
  Transmission Date: 20181010
  Serious: No
  Sender: FDA-Public Use
  Company Number: US-AMGEN-USASP2018093746

PATIENT
  Age: 68 Year
  Sex: Female

DRUGS (1)
  1. REPATHA [Suspect]
     Active Substance: EVOLOCUMAB
     Indication: PRODUCT USED FOR UNKNOWN INDICATION
     Dosage: UNK UNK, Q2WK
     Route: 065

REACTIONS (5)
  - Nausea [Recovering/Resolving]
  - Rhinorrhoea [Unknown]
  - Pain in extremity [Unknown]
  - Influenza like illness [Unknown]
  - Back pain [Unknown]

NARRATIVE: CASE EVENT DATE: 201807
